FAERS Safety Report 12266400 (Version 1)
Quarter: 2016Q2

REPORT INFORMATION
  Report Type: Spontaneous
  Country: US (occurrence: None)
  Receive Date: 20160413
  Receipt Date: 20160413
  Transmission Date: 20160815
  Serious: Yes (Other)
  Sender: FDA-Public Use
  Company Number: None

PATIENT
  Age: 54 Year
  Sex: Female
  Weight: 58.97 kg

DRUGS (3)
  1. CRANBERRY. [Concomitant]
     Active Substance: CRANBERRY
  2. CHANTIX [Suspect]
     Active Substance: VARENICLINE TARTRATE
     Indication: SMOKING CESSATION THERAPY
     Route: 048
     Dates: start: 20160401, end: 20160410
  3. CITALOPRAM [Concomitant]
     Active Substance: CITALOPRAM HYDROBROMIDE

REACTIONS (5)
  - Anxiety [None]
  - Hypersomnia [None]
  - Chest pain [None]
  - Hypopnoea [None]
  - Blood pressure increased [None]

NARRATIVE: CASE EVENT DATE: 20160409
